FAERS Safety Report 5110945-5 (Version None)
Quarter: 2006Q3

REPORT INFORMATION
  Report Type: 
  Country: None (occurrence: None)
  Receive Date: 20060920
  Receipt Date: 20060920
  Transmission Date: 20061208
  Serious: Yes (Other)
  Sender: FDA-Public Use
  Company Number: None

PATIENT
  Age: 47 Year
  Sex: Female
  Weight: 95.2554 kg

DRUGS (1)
  1. KETEK [Suspect]
     Indication: SINUSITIS
     Dosage: 2 DAILY PO
     Route: 048
     Dates: start: 20060710, end: 20060714

REACTIONS (1)
  - LIVER FUNCTION TEST ABNORMAL [None]
